FAERS Safety Report 14346354 (Version 1)
Quarter: 2018Q1

REPORT INFORMATION
  Report Type: Spontaneous
  Country: JP (occurrence: JP)
  Receive Date: 20180103
  Receipt Date: 20180103
  Transmission Date: 20180509
  Serious: Yes (Other)
  Sender: FDA-Public Use
  Company Number: JP-MYLANLABS-2017M1079030

PATIENT
  Age: 54 Year
  Sex: Female

DRUGS (2)
  1. TAMOXIFEN MYLAN [Suspect]
     Active Substance: TAMOXIFEN
     Indication: BREAST CANCER
     Route: 048
  2. TAMOXIFEN MYLAN [Suspect]
     Active Substance: TAMOXIFEN
     Route: 048

REACTIONS (1)
  - Macular oedema [Unknown]
